FAERS Safety Report 9040726 (Version 1)
Quarter: 2013Q1

REPORT INFORMATION
  Report Type: Report from Study
  Country: US (occurrence: US)
  Receive Date: 20130129
  Receipt Date: 20130129
  Transmission Date: 20140127
  Serious: No
  Sender: FDA-Public Use
  Company Number: US-ABBOTT-12P-163-0891675-00

PATIENT
  Sex: Female
  Weight: 98.97 kg

DRUGS (9)
  1. HUMIRA 40 MG/0.8 ML PEN [Suspect]
     Indication: PSORIASIS
     Dates: start: 2007, end: 200911
  2. HUMIRA 40 MG/0.8 ML PEN [Suspect]
     Indication: PSORIATIC ARTHROPATHY
  3. PANTOPRAZOLE [Concomitant]
     Indication: GASTROOESOPHAGEAL REFLUX DISEASE
  4. ZOCOR [Concomitant]
     Indication: BLOOD CHOLESTEROL INCREASED
  5. LISINOPRIL [Concomitant]
     Indication: HYPERTENSION
  6. ZOLOFT [Concomitant]
     Indication: DEPRESSION
  7. ATENOLOL [Concomitant]
     Indication: HYPERTENSION
  8. ASPIRIN [Concomitant]
     Indication: PROPHYLAXIS
  9. OTC SLEEP AIDE [Concomitant]
     Indication: INSOMNIA

REACTIONS (4)
  - Arthralgia [Not Recovered/Not Resolved]
  - Psoriasis [Not Recovered/Not Resolved]
  - Weight increased [Not Recovered/Not Resolved]
  - Thyroxine increased [Unknown]
